FAERS Safety Report 9507345 (Version 3)
Quarter: 2013Q4

REPORT INFORMATION
  Report Type: Spontaneous
  Country: US (occurrence: US)
  Receive Date: 20130909
  Receipt Date: 20131031
  Transmission Date: 20140711
  Serious: Yes (Other)
  Sender: FDA-Public Use
  Company Number: US-PFIZER INC-2013254852

PATIENT
  Age: 57 Year
  Sex: Male

DRUGS (1)
  1. SUTENT [Suspect]
     Indication: RENAL CANCER
     Dosage: 50 MG, ONCE DAILY, 4 WEEKS ON, 2 WEEKS OFF
     Route: 048
     Dates: start: 20130801

REACTIONS (5)
  - Pain [Unknown]
  - Fatigue [Unknown]
  - Rash [Unknown]
  - Gastrointestinal disorder [Unknown]
  - Dizziness [Unknown]
